FAERS Safety Report 10623219 (Version 1)
Quarter: 2014Q4

REPORT INFORMATION
  Report Type: Spontaneous
  Country: US (occurrence: None)
  Receive Date: 20141202
  Receipt Date: 20141202
  Transmission Date: 20150529
  Serious: Yes (Other)
  Sender: FDA-Public Use
  Company Number: None

PATIENT
  Age: 70 Year
  Sex: Female
  Weight: 45.81 kg

DRUGS (1)
  1. VALACYCLOVIR HCL [Suspect]
     Active Substance: VALACYCLOVIR HYDROCHLORIDE
     Indication: HERPES ZOSTER
     Dosage: 1 PILL
     Route: 048
     Dates: start: 20141126, end: 20141126

REACTIONS (8)
  - Sedation [None]
  - Gastrooesophageal reflux disease [None]
  - Dry mouth [None]
  - Thirst [None]
  - Dyspnoea [None]
  - Head discomfort [None]
  - Gait disturbance [None]
  - Feeling abnormal [None]

NARRATIVE: CASE EVENT DATE: 20141126
